FAERS Safety Report 4992811-9 (Version None)
Quarter: 2006Q2

REPORT INFORMATION
  Report Type: 
  Country: None (occurrence: None)
  Receive Date: 20060504
  Receipt Date: 20051001
  Transmission Date: 20061013
  Serious: Yes (Other)
  Sender: FDA-Public Use
  Company Number: PR-MERCK-0510USA01822

PATIENT
  Age: 69 Year
  Sex: Female
  Weight: 74 kg

DRUGS (2)
  1. VIOXX [Suspect]
     Indication: ARTHRITIS
     Route: 048
     Dates: start: 19960101, end: 20040101
  2. VIOXX [Suspect]
     Route: 048
     Dates: start: 19960101, end: 20040101

REACTIONS (22)
  - ANGINA PECTORIS [None]
  - ARRHYTHMIA [None]
  - BALANCE DISORDER [None]
  - CEREBELLAR ATROPHY [None]
  - CEREBRAL ATROPHY [None]
  - CEREBROVASCULAR ACCIDENT [None]
  - GLIOSIS [None]
  - HEADACHE [None]
  - HYPERGLYCAEMIA [None]
  - HYPERTENSION [None]
  - KNEE OPERATION [None]
  - LACUNAR INFARCTION [None]
  - MYOCARDIAL INFARCTION [None]
  - OEDEMA [None]
  - ORGAN FAILURE [None]
  - PAIN IN EXTREMITY [None]
  - PALPITATIONS [None]
  - PROTEINURIA [None]
  - PULMONARY EMBOLISM [None]
  - THROMBOSIS [None]
  - URINARY TRACT INFECTION [None]
  - VOMITING [None]
